FAERS Safety Report 9905440 (Version 1)
Quarter: 2014Q1

REPORT INFORMATION
  Report Type: Report from Study
  Country: US (occurrence: US)
  Receive Date: 20140218
  Receipt Date: 20140218
  Transmission Date: 20141002
  Serious: Yes (Other)
  Sender: FDA-Public Use
  Company Number: US-ALEXION PHARMACEUTICALS INC.-A201102183

PATIENT
  Sex: Female

DRUGS (1)
  1. SOLIRIS [Suspect]
     Indication: PAROXYSMAL NOCTURNAL HAEMOGLOBINURIA
     Route: 042

REACTIONS (7)
  - Haemoglobin decreased [Unknown]
  - Dyspnoea [Unknown]
  - Fall [Unknown]
  - Rib fracture [Unknown]
  - Foot fracture [Unknown]
  - Wound [Recovering/Resolving]
  - Bacteraemia [Recovering/Resolving]
